FAERS Safety Report 12315483 (Version 1)
Quarter: 2016Q2

REPORT INFORMATION
  Report Type: Spontaneous
  Country: US (occurrence: US)
  Receive Date: 20160428
  Receipt Date: 20160428
  Transmission Date: 20160815
  Serious: No
  Sender: FDA-Public Use
  Company Number: US-GLAXOSMITHKLINE-US2016GSK051930

PATIENT
  Age: 8 Year
  Sex: Female

DRUGS (2)
  1. FLOVENT [Suspect]
     Active Substance: FLUTICASONE PROPIONATE
     Indication: ASTHMA
     Dosage: 2 PUFF(S), BID
  2. FLOVENT [Suspect]
     Active Substance: FLUTICASONE PROPIONATE
     Dosage: 110 UG, BID

REACTIONS (1)
  - Fatigue [Not Recovered/Not Resolved]
